FAERS Safety Report 17770621 (Version 3)
Quarter: 2020Q2

REPORT INFORMATION
  Report Type: Report from Study
  Country: US (occurrence: US)
  Receive Date: 20200512
  Receipt Date: 20200618
  Transmission Date: 20200714
  Serious: Yes (Other)
  Sender: FDA-Public Use
  Company Number: US-ROCHE-2592959

PATIENT
  Sex: Male

DRUGS (7)
  1. ENTECAVIR. [Concomitant]
     Active Substance: ENTECAVIR
  2. BIOTIN [Concomitant]
     Active Substance: BIOTIN
     Route: 048
  3. FISH OIL;OMEGA-3 FATTY ACIDS [Concomitant]
     Active Substance: FISH OIL\OMEGA-3 FATTY ACIDS
  4. OCREVUS [Suspect]
     Active Substance: OCRELIZUMAB
     Indication: RELAPSING MULTIPLE SCLEROSIS
     Route: 065
     Dates: start: 20191212, end: 20191212
  5. ACTEMRA [Suspect]
     Active Substance: TOCILIZUMAB
     Indication: SARS-COV-2 TEST POSITIVE
     Route: 042
     Dates: start: 20200425
  6. VARICELLA-ZOSTER IMMUNE GLOBULIN [Concomitant]
     Active Substance: HUMAN VARICELLA-ZOSTER IMMUNE GLOBULIN
     Route: 030
  7. VITAMIN D3 [Concomitant]
     Active Substance: CHOLECALCIFEROL
     Route: 048

REACTIONS (4)
  - COVID-19 pneumonia [Recovered/Resolved]
  - Intentional product use issue [Unknown]
  - Hepatitis B virus test positive [Unknown]
  - Off label use [Unknown]
